FAERS Safety Report 15027398 (Version 1)
Quarter: 2018Q2

REPORT INFORMATION
  Report Type: Report from Study
  Country: DE (occurrence: DE)
  Receive Date: 20180619
  Receipt Date: 20180619
  Transmission Date: 20180711
  Serious: Yes (Death, Life-Threatening, Hospitalization, Congenital Anomaly, Other)
  Sender: FDA-Public Use
  Company Number: DE-TEVA-2018-DE-909898

PATIENT
  Age: 72 Year
  Sex: Female
  Weight: 72 kg

DRUGS (8)
  1. VALSARTAN. [Suspect]
     Active Substance: VALSARTAN
     Dosage: 1 DOSAGE FORMS DAILY; 0.5 DF 100 MG (49/51 MG), BID
     Route: 048
     Dates: start: 20170220
  2. IVABRADINE [Concomitant]
     Active Substance: IVABRADINE
     Indication: CARDIAC FAILURE CHRONIC
     Dosage: 10 MILLIGRAM DAILY;
     Route: 048
  3. SACUBITRIL [Suspect]
     Active Substance: SACUBITRIL
     Dosage: 50 MG (24/26 MG), UNK
     Route: 048
     Dates: start: 20170213, end: 20170220
  4. TORASEMIDE [Concomitant]
     Active Substance: TORSEMIDE
     Indication: CARDIAC FAILURE
     Dosage: 1.5 MILLIGRAM DAILY;
     Dates: start: 20170313
  5. TORASEMIDE [Concomitant]
     Active Substance: TORSEMIDE
     Indication: CARDIAC FAILURE
     Dosage: 1 DOSAGE FORMS DAILY;
     Route: 048
     Dates: start: 20170314
  6. TORASEMIDE [Concomitant]
     Active Substance: TORSEMIDE
     Indication: CARDIAC FAILURE CHRONIC
     Dosage: 10 MILLIGRAM DAILY;
     Route: 048
     Dates: start: 20131127
  7. SACUBITRIL [Suspect]
     Active Substance: SACUBITRIL
     Dosage: 200 MILLIGRAM DAILY; 100 MG (49/51 MG), BID
     Route: 048
     Dates: start: 20170206, end: 20170213
  8. VALSARTAN. [Suspect]
     Active Substance: VALSARTAN
     Indication: CARDIAC FAILURE CHRONIC
     Dosage: 100 MILLIGRAM DAILY; 50 MG (24/26 MG), BID
     Route: 048
     Dates: start: 20170112, end: 20170206

REACTIONS (16)
  - Hypotension [Fatal]
  - Cardiac failure [Fatal]
  - Cardiac failure [Fatal]
  - Gout [Not Recovered/Not Resolved]
  - Wrong technique in product usage process [Unknown]
  - Fear [Fatal]
  - Ileus [Recovered/Resolved]
  - Mitral valve incompetence [Not Recovered/Not Resolved]
  - Agitation [Not Recovered/Not Resolved]
  - Tachycardia [Recovered/Resolved with Sequelae]
  - Hypotension [Recovered/Resolved with Sequelae]
  - Tricuspid valve incompetence [Not Recovered/Not Resolved]
  - Pneumonia [Recovered/Resolved]
  - Drug prescribing error [Unknown]
  - Pleural effusion [Recovered/Resolved with Sequelae]
  - Fall [Recovering/Resolving]

NARRATIVE: CASE EVENT DATE: 20170313
